FAERS Safety Report 6185421-1 (Version None)
Quarter: 2009Q2

REPORT INFORMATION
  Report Type: 
  Country: None (occurrence: None)
  Receive Date: 20090511
  Receipt Date: 20090504
  Transmission Date: 20091009
  Serious: Yes (Other)
  Sender: FDA-Public Use
  Company Number: US-ASTRAZENECA-2009UW11360

PATIENT
  Age: 75 Year
  Sex: Female
  Weight: 86.2 kg

DRUGS (4)
  1. CRESTOR [Suspect]
     Indication: BLOOD CHOLESTEROL INCREASED
     Route: 048
     Dates: start: 20060501
  2. LISINOPRIL [Concomitant]
  3. FOSAMAX [Concomitant]
  4. ASPIRIN [Concomitant]

REACTIONS (4)
  - ARTHRITIS [None]
  - BONE PAIN [None]
  - FALL [None]
  - JOINT DISLOCATION [None]
